FAERS Safety Report 19321639 (Version 1)
Quarter: 2021Q2

REPORT INFORMATION
  Report Type: Spontaneous
  Country: FR (occurrence: FR)
  Receive Date: 20210527
  Receipt Date: 20210527
  Transmission Date: 20210717
  Serious: Yes (Other)
  Sender: FDA-Public Use
  Company Number: FR-TEVA-2021-FR-1899807

PATIENT
  Age: 56 Year
  Sex: Female
  Weight: 67 kg

DRUGS (2)
  1. COPAXONE [Suspect]
     Active Substance: GLATIRAMER ACETATE
     Indication: MULTIPLE SCLEROSIS
     Route: 058
     Dates: start: 20210315
  2. COPAXONE [Suspect]
     Active Substance: GLATIRAMER ACETATE
     Dates: start: 2006

REACTIONS (6)
  - Feeling hot [Recovered/Resolved]
  - Back pain [Recovered/Resolved]
  - Erythema [Not Recovered/Not Resolved]
  - Injection site pain [Recovered/Resolved]
  - Choking [Recovered/Resolved]
  - Swelling face [Not Recovered/Not Resolved]

NARRATIVE: CASE EVENT DATE: 2021
